FAERS Safety Report 21283347 (Version 2)
Quarter: 2022Q3

REPORT INFORMATION
  Report Type: Spontaneous
  Country: US (occurrence: None)
  Receive Date: 20220901
  Receipt Date: 20220921
  Transmission Date: 20221027
  Serious: No
  Sender: FDA-Public Use
  Company Number: 2022A276576

PATIENT
  Sex: Female
  Weight: 113.4 kg

DRUGS (1)
  1. TEZSPIRE [Suspect]
     Active Substance: TEZEPELUMAB-EKKO
     Indication: Asthma
     Dosage: ONCE/SINGLE ADMINISTRATION
     Route: 058
     Dates: start: 20220726

REACTIONS (2)
  - Urticaria [Unknown]
  - Rash pruritic [Unknown]
